FAERS Safety Report 7888771-3 (Version None)
Quarter: 2011Q4

REPORT INFORMATION
  Report Type: 
  Country: None (occurrence: None)
  Receive Date: 20111031
  Receipt Date: 20111011
  Transmission Date: 20120403
  Serious: Yes (Hospitalization, Other)
  Sender: FDA-Public Use
  Company Number: 2011SP041931

PATIENT
  Age: 65 Year
  Sex: Female

DRUGS (2)
  1. RIBAVIRIN [Suspect]
     Indication: HEPATITIS C
     Dosage: 400 MG; BID;
     Dates: start: 20110801
  2. PEG-INTRON [Suspect]
     Indication: HEPATITIS C
     Dates: start: 20110801

REACTIONS (9)
  - CYSTITIS [None]
  - ANAEMIA [None]
  - ORTHOSTATIC HYPOTENSION [None]
  - WHITE BLOOD CELL COUNT DECREASED [None]
  - WEIGHT DECREASED [None]
  - DYSPNOEA [None]
  - FALL [None]
  - FATIGUE [None]
  - POLLAKIURIA [None]
